FAERS Safety Report 9904764 (Version 1)
Quarter: 2014Q1

REPORT INFORMATION
  Report Type: Spontaneous
  Country: US (occurrence: US)
  Receive Date: 20140218
  Receipt Date: 20140218
  Transmission Date: 20141002
  Serious: No
  Sender: FDA-Public Use
  Company Number: US-BAYER-2014-024957

PATIENT
  Sex: 0

DRUGS (5)
  1. ALEVE CAPLET [Suspect]
     Indication: PAIN
  2. VICODIN [Concomitant]
     Dosage: UNK
  3. NORCO [Concomitant]
     Dosage: UNK
  4. VOLTAREN [DICLOFENAC] [Concomitant]
     Dosage: UNK
  5. XANAX [Concomitant]
     Dosage: UNK

REACTIONS (1)
  - Drug ineffective [None]
